FAERS Safety Report 16435079 (Version 2)
Quarter: 2019Q3

REPORT INFORMATION
  Report Type: Spontaneous
  Country: US (occurrence: US)
  Receive Date: 20190614
  Receipt Date: 20190709
  Transmission Date: 20191004
  Serious: No
  Sender: FDA-Public Use
  Company Number: US-JNJFOC-20190542349

PATIENT
  Sex: Female

DRUGS (1)
  1. NORGESTIMATE/ETHINYL ESTRADIOL [Suspect]
     Active Substance: ETHINYL ESTRADIOL\NORGESTIMATE
     Indication: PRODUCT USED FOR UNKNOWN INDICATION
     Dosage: 0.180 MG / 0.035 MG, 0.215 MG / 0.035 MG, 0.250 MG / 0.035MG
     Route: 048

REACTIONS (5)
  - Treatment noncompliance [Unknown]
  - Polycystic ovaries [Unknown]
  - Malaise [Unknown]
  - Adverse event [Unknown]
  - Therapeutic product effect decreased [Unknown]
